FAERS Safety Report 19959191 (Version 1)
Quarter: 2021Q4

REPORT INFORMATION
  Report Type: Spontaneous
  Country: US (occurrence: US)
  Receive Date: 20211012
  Receipt Date: 20211012
  Transmission Date: 20220303
  Serious: Yes (Hospitalization)
  Sender: FDA-Public Use
  Company Number: None

PATIENT
  Age: 51 Year
  Sex: Female

DRUGS (1)
  1. GLEEVEC [Suspect]
     Active Substance: IMATINIB MESYLATE
     Indication: Malignant mast cell neoplasm
     Route: 048
     Dates: start: 20161015

REACTIONS (2)
  - Spinal nerve stimulator removal [None]
  - Implant site infection [None]

NARRATIVE: CASE EVENT DATE: 20210913
